FAERS Safety Report 12380592 (Version 1)
Quarter: 2016Q2

REPORT INFORMATION
  Report Type: Spontaneous
  Country: US (occurrence: None)
  Receive Date: 20160517
  Receipt Date: 20160517
  Transmission Date: 20160815
  Serious: Yes (Disabling)
  Sender: FDA-Public Use
  Company Number: None

PATIENT
  Age: 58 Year
  Sex: Male
  Weight: 99.79 kg

DRUGS (1)
  1. EYLEA [Suspect]
     Active Substance: AFLIBERCEPT
     Indication: DIABETIC RETINAL OEDEMA
     Dates: start: 20160317, end: 20160413

REACTIONS (3)
  - Endophthalmitis [None]
  - Blindness unilateral [None]
  - Streptococcal infection [None]

NARRATIVE: CASE EVENT DATE: 20160413
